FAERS Safety Report 15440119 (Version 2)
Quarter: 2018Q4

REPORT INFORMATION
  Report Type: Report from Study
  Country: US (occurrence: US)
  Receive Date: 20180928
  Receipt Date: 20181012
  Transmission Date: 20190204
  Serious: Yes (Hospitalization, Other)
  Sender: FDA-Public Use
  Company Number: US-GILEAD-2018-0362094

PATIENT
  Age: 73 Year
  Sex: Female
  Weight: 104.31 kg

DRUGS (14)
  1. AMBRISENTAN [Suspect]
     Active Substance: AMBRISENTAN
     Indication: PULMONARY HYPERTENSION
     Dosage: 10 MG, QD
     Route: 065
  2. AMLODIPINE [Concomitant]
     Active Substance: AMLODIPINE BESYLATE
  3. IRON [Concomitant]
     Active Substance: IRON
  4. ASA [Concomitant]
     Active Substance: ASPIRIN
  5. CHLORTHALIDONE. [Concomitant]
     Active Substance: CHLORTHALIDONE
  6. VITAMIN D [Concomitant]
     Active Substance: CHOLECALCIFEROL
  7. EPIPEN [Concomitant]
     Active Substance: EPINEPHRINE
  8. PLAVIX [Concomitant]
     Active Substance: CLOPIDOGREL BISULFATE
  9. ADEMPAS [Concomitant]
     Active Substance: RIOCIGUAT
  10. STIOLTO RESPIMAT [Concomitant]
     Active Substance: OLODATEROL HYDROCHLORIDE\TIOTROPIUM BROMIDE MONOHYDRATE
  11. PROAIR HFA [Concomitant]
     Active Substance: ALBUTEROL SULFATE
  12. KILEN [Concomitant]
  13. BISOPROLOL FUMARATE. [Concomitant]
     Active Substance: BISOPROLOL FUMARATE
  14. PREVACID [Concomitant]
     Active Substance: LANSOPRAZOLE

REACTIONS (7)
  - Oedema [Unknown]
  - Fluid retention [Unknown]
  - Fatigue [Unknown]
  - Dyspnoea [Unknown]
  - Oedema peripheral [Unknown]
  - Right ventricular failure [Unknown]
  - Product dose omission [Unknown]

NARRATIVE: CASE EVENT DATE: 20180905
